FAERS Safety Report 5218589-1 (Version None)
Quarter: 2007Q1

REPORT INFORMATION
  Report Type: 
  Country: None (occurrence: None)
  Receive Date: 20070122
  Receipt Date: 20070109
  Transmission Date: 20070707
  Serious: Yes (Disabling, Other)
  Sender: FDA-Public Use
  Company Number: 2006RL000366

PATIENT
  Age: 72 Year
  Sex: Male
  Weight: 91 kg

DRUGS (5)
  1. RYTHMOL [Suspect]
     Indication: ARRHYTHMIA
     Dosage: PO
     Route: 048
     Dates: start: 20020101
  2. RYTHMOL [Suspect]
     Indication: EXTRASYSTOLES
     Dosage: PO
     Route: 048
     Dates: start: 20020101
  3. MONTELUKST [Concomitant]
  4. BUDESONIDE [Concomitant]
  5. FORMOTEROL FUMARATE [Concomitant]

REACTIONS (1)
  - COMPLEX REGIONAL PAIN SYNDROME [None]
